FAERS Safety Report 21444172 (Version 3)
Quarter: 2022Q4

REPORT INFORMATION
  Report Type: Spontaneous
  Country: US (occurrence: US)
  Receive Date: 20221012
  Receipt Date: 20221121
  Transmission Date: 20230112
  Serious: Yes (Hospitalization, Other)
  Sender: FDA-Public Use
  Company Number: US-JNJFOC-20221013844

PATIENT
  Age: 69 Year
  Sex: Female
  Weight: 79.450 kg

DRUGS (1)
  1. XARELTO [Suspect]
     Active Substance: RIVAROXABAN
     Indication: Deep vein thrombosis
     Dosage: PRESCRIPTION NUMBER- 423979998
     Route: 048
     Dates: start: 20150407, end: 20220922

REACTIONS (2)
  - Deep vein thrombosis [Recovering/Resolving]
  - Treatment failure [Unknown]
